FAERS Safety Report 15285342 (Version 4)
Quarter: 2019Q1

REPORT INFORMATION
  Report Type: Spontaneous
  Country: CA (occurrence: CA)
  Receive Date: 20180816
  Receipt Date: 20190107
  Transmission Date: 20190417
  Serious: No
  Sender: FDA-Public Use
  Company Number: CA-CELLTRION INC.-2018CA020482

PATIENT

DRUGS (14)
  1. PREDNISONE. [Concomitant]
     Active Substance: PREDNISONE
     Dosage: UNK
  2. CALCIUM [Concomitant]
     Active Substance: CALCIUM
     Dosage: UNK
  3. MULTIVITAMIN + MINERAL [Concomitant]
     Active Substance: MINERALS\VITAMINS
     Dosage: UNK
  4. INFLECTRA [Suspect]
     Active Substance: INFLIXIMAB-DYYB
     Dosage: 600 MG, CYCLIC AT 2,6 WEEKS, THEN EVERY 8 WEEKS
     Route: 042
     Dates: start: 20180613
  5. INFLECTRA [Suspect]
     Active Substance: INFLIXIMAB-DYYB
     Dosage: 600 MG CYCLIC (EVERY 2,6 WEEKS AND EVERY 8 WEEKS)
     Route: 042
     Dates: start: 20181123
  6. CORTIFOAM [Concomitant]
     Active Substance: HYDROCORTISONE ACETATE
     Dosage: UNK
  7. INFLECTRA [Suspect]
     Active Substance: INFLIXIMAB-DYYB
     Dosage: 600 MG, CYCLIC AT 2,6 WEEKS, THEN EVERY 8 WEEKS
     Route: 042
     Dates: start: 20180323
  8. INFLECTRA [Suspect]
     Active Substance: INFLIXIMAB-DYYB
     Dosage: 600 MG, CYCLIC AT 2,6 WEEKS, THEN EVERY 8 WEEKS
     Route: 042
     Dates: start: 20180420
  9. INFLECTRA [Suspect]
     Active Substance: INFLIXIMAB-DYYB
     Dosage: 600 MG, CYCLIC AT 2,6 WEEKS, THEN EVERY 8 WEEKS
     Route: 042
     Dates: start: 20180420
  10. INFLECTRA [Suspect]
     Active Substance: INFLIXIMAB-DYYB
     Dosage: 600 MG, CYCLIC AT 2,6 WEEKS, THEN EVERY 8 WEEKS
     Route: 042
     Dates: start: 20180420
  11. INFLECTRA [Suspect]
     Active Substance: INFLIXIMAB-DYYB
     Indication: COLITIS ULCERATIVE
     Dosage: 600 MG, CYCLIC AT 2,6 WEEKS, THEN EVERY 8 WEEKS
     Route: 042
     Dates: start: 20180309
  12. INFLECTRA [Suspect]
     Active Substance: INFLIXIMAB-DYYB
     Dosage: 600 MG CYCLIC (EVERY 2,6 WEEKS AND EVERY 8 WEEKS)
     Route: 042
     Dates: start: 20180927
  13. PROBIOTIC                          /06395501/ [Concomitant]
     Active Substance: BIFIDOBACTERIUM ANIMALIS LACTIS
     Dosage: UNK
  14. INFLECTRA [Suspect]
     Active Substance: INFLIXIMAB-DYYB
     Dosage: 600 MG CYCLIC (EVERY 2,6 WEEKS AND EVERY 8 WEEKS)
     Route: 042
     Dates: start: 20180927

REACTIONS (4)
  - Condition aggravated [Unknown]
  - Blood pressure decreased [Unknown]
  - Pharyngitis streptococcal [Recovered/Resolved]
  - Urinary tract infection [Recovering/Resolving]

NARRATIVE: CASE EVENT DATE: 20180612
